FAERS Safety Report 8966273 (Version 1)
Quarter: 2012Q4

REPORT INFORMATION
  Report Type: 
  Country: BR (occurrence: BR)
  Receive Date: 20121214
  Receipt Date: 20121214
  Transmission Date: 20130627
  Serious: Yes (Other)
  Sender: FDA-Public Use
  Company Number: BR-BRISTOL-MYERS SQUIBB COMPANY-17185612

PATIENT
  Age: 85 Year
  Sex: Female
  Weight: 65 kg

DRUGS (9)
  1. APROZIDE [Suspect]
     Indication: HYPERTENSION
     Dosage: 1995-unk (2 yrs ago):
unk (2 yrs ago)-ong:0.5 tab/daily
tabs
     Dates: start: 1995
  2. STILNOX [Concomitant]
     Indication: INSOMNIA
     Dosage: 1DF:1tab
at bed time
     Route: 048
  3. LORAX [Concomitant]
     Dosage: 0.5 tb at dinner
started 3 or 4 yrs ago
tabs
     Route: 048
  4. ATENOLOL [Concomitant]
     Indication: BLOOD CHOLESTEROL INCREASED
     Dosage: 1/2 tab at bed time
     Route: 048
  5. EXELON [Concomitant]
     Indication: COGNITIVE DISORDER
     Dosage: 6 mg
     Route: 062
  6. SEROQUEL [Concomitant]
     Dosage: 1 tab at 4 pm
     Route: 048
  7. ESCITALOPRAM [Concomitant]
     Indication: DEPRESSION
     Dosage: 0.5 tab at 10 am and 1 tab at bed time
  8. SOMALGIN [Concomitant]
     Indication: CARDIAC DISORDER
     Dosage: 1 tab at lunch
     Route: 048
  9. BROMAZEPAM [Concomitant]
     Indication: ANXIOLYTIC THERAPY
     Dosage: 1 tab
     Route: 048

REACTIONS (2)
  - Parkinson^s disease [Unknown]
  - Medication error [Unknown]
